FAERS Safety Report 8187279-8 (Version None)
Quarter: 2012Q1

REPORT INFORMATION
  Report Type: 
  Country: None (occurrence: None)
  Receive Date: 20120302
  Receipt Date: 20120221
  Transmission Date: 20120608
  Serious: Yes (Life-Threatening)
  Sender: FDA-Public Use
  Company Number: 2012SP009695

PATIENT
  Age: 66 Year
  Sex: Female

DRUGS (5)
  1. AERIUS (DESLORATADINE /0139850/) [Suspect]
     Indication: PRODUCT USED FOR UNKNOWN INDICATION
     Dosage: 5 MG; QD
  2. ZOPICLONE [Concomitant]
  3. ATENOLOL [Concomitant]
  4. PREMARIN [Concomitant]
  5. APO TRAIZIDE [Concomitant]

REACTIONS (5)
  - HYPERTENSION [None]
  - PYREXIA [None]
  - COUGH [None]
  - FLUSHING [None]
  - NAUSEA [None]
